FAERS Safety Report 7918615-2 (Version None)
Quarter: 2011Q4

REPORT INFORMATION
  Report Type: 
  Country: None (occurrence: None)
  Receive Date: 20111116
  Receipt Date: 20111111
  Transmission Date: 20120403
  Serious: Yes (Hospitalization, Other)
  Sender: FDA-Public Use
  Company Number: CA-ABBOTT-11P-028-0871922-00

PATIENT
  Sex: Female
  Weight: 71.732 kg

DRUGS (4)
  1. MAVIK [Suspect]
     Dates: start: 20110621
  2. PERINDOPRIL ERBUMINE [Suspect]
     Indication: PRODUCT USED FOR UNKNOWN INDICATION
  3. MODURET [Concomitant]
     Indication: DIURETIC THERAPY
  4. MAVIK [Suspect]
     Indication: ESSENTIAL HYPERTENSION
     Route: 048
     Dates: start: 20100803

REACTIONS (4)
  - CEREBROVASCULAR ACCIDENT [None]
  - COUGH [None]
  - VIITH NERVE PARALYSIS [None]
  - ASTHENIA [None]
